FAERS Safety Report 24726610 (Version 1)
Quarter: 2024Q4

REPORT INFORMATION
  Report Type: Spontaneous
  Country: US (occurrence: None)
  Receive Date: 20241211
  Receipt Date: 20241211
  Transmission Date: 20250114
  Serious: Yes (Disabling)
  Sender: Public
  Company Number: None

PATIENT
  Age: 65 Year
  Sex: Female
  Weight: 81 kg

DRUGS (8)
  1. AFRIN ORIGINAL [Suspect]
     Active Substance: OXYMETAZOLINE HYDROCHLORIDE
     Indication: Nasal congestion
     Route: 055
     Dates: start: 20240422, end: 20240422
  2. COSOPT PF [Concomitant]
     Active Substance: DORZOLAMIDE HYDROCHLORIDE\TIMOLOL MALEATE
  3. BROMONIDINE TARTRATE [Concomitant]
  4. VITAMIN D WITH K [Concomitant]
  5. GLAUCOMIN [Concomitant]
  6. CRANBERRY [Concomitant]
     Active Substance: CRANBERRY
  7. PROBIOTICS NOS [Concomitant]
     Active Substance: PROBIOTICS NOS
  8. VISION MD [Concomitant]

REACTIONS (9)
  - Nausea [None]
  - Vomiting [None]
  - Eye pain [None]
  - Eye swelling [None]
  - Bacterial infection [None]
  - Drug ineffective [None]
  - Glaucoma [None]
  - Uveitis [None]
  - Narrow anterior chamber angle [None]

NARRATIVE: CASE EVENT DATE: 20240422
